FAERS Safety Report 13301967 (Version 1)
Quarter: 2017Q1

REPORT INFORMATION
  Report Type: Spontaneous
  Country: TW (occurrence: TW)
  Receive Date: 20170307
  Receipt Date: 20170307
  Transmission Date: 20170428
  Serious: Yes (Hospitalization)
  Sender: FDA-Public Use
  Company Number: TW-HQ SPECIALTY-TW-2017INT000056

PATIENT

DRUGS (3)
  1. CISPLATIN. [Suspect]
     Active Substance: CISPLATIN
     Indication: NASOPHARYNGEAL CANCER
     Dosage: 60 MG/M2, EVERY 3 WEEKS, FOR 4-6 CYCLES
  2. MITOMYCIN C [Suspect]
     Active Substance: MITOMYCIN
     Indication: NASOPHARYNGEAL CANCER
     Dosage: 8 MG/M2, EVERY 3 WEEKS, FOR 4-6 CYCLES
  3. EPIRUBICIN [Suspect]
     Active Substance: EPIRUBICIN
     Indication: NASOPHARYNGEAL CANCER
     Dosage: 60 MG/M2, EVERY 3 WEEKS, FOR 4-6 CYCLES

REACTIONS (1)
  - Febrile neutropenia [Unknown]
